FAERS Safety Report 10438837 (Version 1)
Quarter: 2014Q3

REPORT INFORMATION
  Report Type: Spontaneous
  Country: US (occurrence: US)
  Receive Date: 20140908
  Receipt Date: 20140908
  Transmission Date: 20150326
  Serious: No
  Sender: FDA-Public Use
  Company Number: US-BRISTOL-MYERS SQUIBB COMPANY-21180195

PATIENT
  Age: 64 Year
  Sex: Female
  Weight: 69.61 kg

DRUGS (7)
  1. CYMBALTA [Concomitant]
     Active Substance: DULOXETINE HYDROCHLORIDE
  2. ZETIA [Concomitant]
     Active Substance: EZETIMIBE
  3. ABILIFY [Suspect]
     Active Substance: ARIPIPRAZOLE
  4. COQ10 [Concomitant]
     Active Substance: UBIDECARENONE
  5. LOPID [Concomitant]
     Active Substance: GEMFIBROZIL
  6. ESTRACE [Concomitant]
     Active Substance: ESTRADIOL
  7. IRON [Concomitant]
     Active Substance: IRON

REACTIONS (1)
  - Weight increased [Unknown]
